FAERS Safety Report 7180279-6 (Version None)
Quarter: 2010Q4

REPORT INFORMATION
  Report Type: 
  Country: None (occurrence: None)
  Receive Date: 20101209
  Receipt Date: 20101124
  Transmission Date: 20110411
  Serious: Yes (Hospitalization)
  Sender: FDA-Public Use
  Company Number: 022771

PATIENT
  Sex: Male
  Weight: 66 kg

DRUGS (1)
  1. CIMZIA [Suspect]
     Indication: CROHN'S DISEASE
     Dosage: 400 MG 1X/28 DAYS, SUBCUTANEOUS
     Route: 058
     Dates: start: 20090301, end: 20101023

REACTIONS (1)
  - SURGERY [None]
